FAERS Safety Report 15437295 (Version 1)
Quarter: 2018Q3

REPORT INFORMATION
  Report Type: Spontaneous
  Country: US (occurrence: US)
  Receive Date: 20180927
  Receipt Date: 20180927
  Transmission Date: 20181010
  Serious: No
  Sender: FDA-Public Use
  Company Number: US-AMGEN-USASP2018042017

PATIENT
  Age: 67 Year
  Sex: Female

DRUGS (2)
  1. XGEVA [Suspect]
     Active Substance: DENOSUMAB
     Indication: PRODUCT USED FOR UNKNOWN INDICATION
     Dosage: UNK
     Route: 065
  2. IBRANCE [Suspect]
     Active Substance: PALBOCICLIB
     Indication: BREAST CANCER
     Dosage: 125 MG, QD/21 DAYS ON AND 7 DAYS OFF
     Route: 048
     Dates: start: 20171111

REACTIONS (8)
  - Dyspepsia [Recovered/Resolved]
  - Fatigue [Unknown]
  - Gingival disorder [Unknown]
  - Peripheral swelling [Recovered/Resolved]
  - Dysphagia [Recovered/Resolved]
  - Renal disorder [Not Recovered/Not Resolved]
  - Thyroid function test abnormal [Not Recovered/Not Resolved]
  - Dyspnoea [Unknown]

NARRATIVE: CASE EVENT DATE: 2018
